FAERS Safety Report 15535723 (Version 1)
Quarter: 2018Q4

REPORT INFORMATION
  Report Type: Spontaneous
  Country: US (occurrence: US)
  Receive Date: 20181022
  Receipt Date: 20181022
  Transmission Date: 20190205
  Serious: No
  Sender: FDA-Public Use
  Company Number: US-PFIZER INC-2018424587

PATIENT
  Age: 63 Year
  Sex: Female

DRUGS (1)
  1. XELJANZ XR [Suspect]
     Active Substance: TOFACITINIB CITRATE
     Indication: NEOPLASM
     Dosage: 11 MG, DAILY (1 TABLET BY MOUTH DAILY)
     Route: 048
     Dates: start: 201806

REACTIONS (2)
  - Weight increased [Unknown]
  - Drug effective for unapproved indication [Unknown]
